FAERS Safety Report 14892007 (Version 1)
Quarter: 2018Q2

REPORT INFORMATION
  Report Type: Spontaneous
  Country: GB (occurrence: GB)
  Receive Date: 20180514
  Receipt Date: 20180514
  Transmission Date: 20180711
  Serious: Yes (Other)
  Sender: FDA-Public Use
  Company Number: GB-PFIZER INC-2018191628

PATIENT
  Age: 75 Year
  Sex: Female
  Weight: 75.28 kg

DRUGS (1)
  1. NEURONTIN [Suspect]
     Active Substance: GABAPENTIN
     Indication: NEUROPATHY PERIPHERAL
     Dosage: 3600 MG, 1X/DAY
     Route: 048
     Dates: start: 20180201, end: 20180315

REACTIONS (4)
  - Somnolence [Recovering/Resolving]
  - Defaecation urgency [Recovering/Resolving]
  - Nausea [Recovering/Resolving]
  - Reaction to excipient [Unknown]

NARRATIVE: CASE EVENT DATE: 20180201
